FAERS Safety Report 14357735 (Version 1)
Quarter: 2018Q1

REPORT INFORMATION
  Report Type: Spontaneous
  Country: GB (occurrence: GB)
  Receive Date: 20180105
  Receipt Date: 20180105
  Transmission Date: 20180509
  Serious: Yes (Hospitalization)
  Sender: FDA-Public Use
  Company Number: GB-MYLANLABS-2017M1083618

PATIENT
  Sex: Male

DRUGS (3)
  1. CLOZARIL [Suspect]
     Active Substance: CLOZAPINE
     Indication: SCHIZOPHRENIA
     Dosage: UNK
     Route: 048
     Dates: start: 20171101
  2. CLOZARIL [Suspect]
     Active Substance: CLOZAPINE
     Dosage: 300 MG, PM
     Route: 048
     Dates: start: 2017
  3. CLOZARIL [Suspect]
     Active Substance: CLOZAPINE
     Dosage: 125 MG, AM
     Route: 048
     Dates: start: 2017

REACTIONS (4)
  - Somnolence [Unknown]
  - Troponin increased [Unknown]
  - Sedation [Unknown]
  - Cold sweat [Unknown]

NARRATIVE: CASE EVENT DATE: 2017
